FAERS Safety Report 24404778 (Version 1)
Quarter: 2024Q4

REPORT INFORMATION
  Report Type: Spontaneous
  Country: US (occurrence: None)
  Receive Date: 20241004
  Receipt Date: 20241004
  Transmission Date: 20250115
  Serious: Yes (Hospitalization)
  Sender: Public
  Company Number: None

PATIENT
  Age: 68 Year
  Sex: Male

DRUGS (2)
  1. METOPROLOL TARTRATE [Suspect]
     Active Substance: METOPROLOL TARTRATE
     Indication: Hypertension
     Dosage: FREQUENCY : TWICE A DAY;?
     Route: 048
     Dates: start: 20150529, end: 20240502
  2. FUROSEMIDE [Suspect]
     Active Substance: FUROSEMIDE
     Indication: Hypertension
     Dosage: OTHER FREQUENCY : AM;?
     Route: 048
     Dates: start: 20211027, end: 20240502

REACTIONS (8)
  - Bradycardia [None]
  - Hypotension [None]
  - Hypovolaemia [None]
  - Hyponatraemia [None]
  - Hypovolaemia [None]
  - Hypophagia [None]
  - Pericardial effusion [None]
  - Acute kidney injury [None]

NARRATIVE: CASE EVENT DATE: 20240501
